FAERS Safety Report 9915490 (Version 1)
Quarter: 2014Q1

REPORT INFORMATION
  Report Type: Spontaneous
  Country: NG (occurrence: NG)
  Receive Date: 20140221
  Receipt Date: 20140221
  Transmission Date: 20141002
  Serious: Yes (Death)
  Sender: FDA-Public Use
  Company Number: NG-ROCHE-1351851

PATIENT
  Sex: Female

DRUGS (3)
  1. AVASTIN [Suspect]
     Indication: UTERINE CANCER
     Dosage: CYCLE 1
     Route: 065
  2. AVASTIN [Suspect]
     Dosage: CYCLE 2
     Route: 065
  3. PACLITAXEL [Concomitant]
     Indication: UTERINE CANCER

REACTIONS (2)
  - Death [Fatal]
  - Off label use [Unknown]
